FAERS Safety Report 25604878 (Version 2)
Quarter: 2025Q3

REPORT INFORMATION
  Report Type: Spontaneous
  Country: EU (occurrence: EU)
  Receive Date: 20250725
  Receipt Date: 20250814
  Transmission Date: 20251020
  Serious: Yes (Other)
  Sender: IMMUNOCORE
  Company Number: EU-Medison-001457

PATIENT

DRUGS (7)
  1. KIMMTRAK [Suspect]
     Active Substance: TEBENTAFUSP-TEBN
     Indication: Uveal melanoma
     Dates: start: 20250305
  2. KIMMTRAK [Suspect]
     Active Substance: TEBENTAFUSP-TEBN
     Route: 042
     Dates: start: 20250603
  3. PAROXETINE [Concomitant]
     Active Substance: PAROXETINE
     Indication: Product used for unknown indication
  4. OLANZAPINE [Concomitant]
     Active Substance: OLANZAPINE
     Indication: Product used for unknown indication
  5. FENTANYL [Concomitant]
     Active Substance: FENTANYL
     Indication: Product used for unknown indication
  6. TRAMADOL [Concomitant]
     Active Substance: TRAMADOL
     Indication: Product used for unknown indication
  7. ACETAMINOPHEN [Concomitant]
     Active Substance: ACETAMINOPHEN
     Indication: Product used for unknown indication

REACTIONS (1)
  - Disease progression [Not Recovered/Not Resolved]
